FAERS Safety Report 20226953 (Version 1)
Quarter: 2021Q4

REPORT INFORMATION
  Report Type: Spontaneous
  Country: US (occurrence: US)
  Receive Date: 20211224
  Receipt Date: 20211224
  Transmission Date: 20220303
  Serious: No
  Sender: FDA-Public Use
  Company Number: US-ELI_LILLY_AND_COMPANY-US202112000814

PATIENT
  Sex: Female

DRUGS (4)
  1. HUMULIN R U-500 [Suspect]
     Active Substance: INSULIN HUMAN
     Indication: Type 2 diabetes mellitus
     Dosage: UNK UNK, UNKNOWN
     Route: 065
  2. LANTUS [Suspect]
     Active Substance: INSULIN GLARGINE
     Indication: Type 2 diabetes mellitus
     Dosage: UNK UNK, UNKNOWN
     Route: 065
  3. NOVOLIN R [Concomitant]
     Active Substance: INSULIN HUMAN
     Indication: Type 2 diabetes mellitus
  4. NOVOLIN N [Concomitant]
     Active Substance: INSULIN HUMAN
     Indication: Type 2 diabetes mellitus

REACTIONS (9)
  - Blood glucose increased [Unknown]
  - Myalgia [Unknown]
  - Blood potassium decreased [Unknown]
  - Hypothyroidism [Unknown]
  - Paraesthesia [Unknown]
  - Fungal infection [Unknown]
  - Vision blurred [Unknown]
  - Peripheral swelling [Unknown]
  - Injection site infection [Unknown]
